FAERS Safety Report 9557884 (Version 3)
Quarter: 2013Q4

REPORT INFORMATION
  Report Type: Report from Study
  Country: US (occurrence: US)
  Receive Date: 20130926
  Receipt Date: 20131016
  Transmission Date: 20140711
  Serious: Yes (Other)
  Sender: FDA-Public Use
  Company Number: US-PFIZER INC-2013272347

PATIENT
  Age: 11 Year
  Sex: Female

DRUGS (5)
  1. PHENYTOIN SODIUM [Suspect]
     Indication: CONVULSION
     Dosage: UNK
     Route: 042
  2. DEXAMETHASONE SODIUM PHOSPHATE [Suspect]
     Indication: CONVULSION
     Dosage: UNK
  3. PHENOBARBITAL [Suspect]
     Indication: CONVULSION
     Dosage: UNK
  4. PARALDEHYDE [Suspect]
     Indication: GRAND MAL CONVULSION
     Dosage: 6% PARALDEHYDE INFUSION
  5. PARALDEHYDE [Suspect]
     Dosage: TITRATED TO 50 ML/H

REACTIONS (3)
  - Drug ineffective [Unknown]
  - Apnoeic attack [Unknown]
  - Bradycardia [Unknown]
